FAERS Safety Report 7698715-5 (Version None)
Quarter: 2011Q3

REPORT INFORMATION
  Report Type: 
  Country: None (occurrence: None)
  Receive Date: 20110819
  Receipt Date: 20110816
  Transmission Date: 20111222
  Serious: Yes (Other)
  Sender: FDA-Public Use
  Company Number: FR-ABBOTT-11P-056-0846911-00

PATIENT
  Age: 35 Year
  Sex: Male

DRUGS (4)
  1. LEVOFLOXACIN [Concomitant]
     Indication: PROPHYLAXIS
     Dates: start: 20110101
  2. KETOPROFEN [Concomitant]
     Indication: PRODUCT USED FOR UNKNOWN INDICATION
  3. HUMIRA [Suspect]
     Indication: RHEUMATOID ARTHRITIS
     Dates: end: 20100101
  4. NAPHAZOLINE HCL [Concomitant]
     Indication: PRODUCT USED FOR UNKNOWN INDICATION

REACTIONS (3)
  - SINUS OPERATION [None]
  - EPISTAXIS [None]
  - IMPAIRED HEALING [None]
